FAERS Safety Report 7281990-9 (Version None)
Quarter: 2011Q1

REPORT INFORMATION
  Report Type: 
  Country: None (occurrence: None)
  Receive Date: 20110208
  Receipt Date: 20110131
  Transmission Date: 20110831
  Serious: Yes (Life-Threatening, Hospitalization)
  Sender: FDA-Public Use
  Company Number: JP-AMGEN-JPNCT2011004639

PATIENT
  Age: 44 Year
  Sex: Male
  Weight: 81 kg

DRUGS (9)
  1. PANITUMUMAB [Suspect]
     Indication: COLORECTAL CANCER
     Dosage: 600 MG, Q2WK
     Route: 041
     Dates: start: 20110105
  2. LOXONIN [Concomitant]
     Indication: CANCER PAIN
     Route: 065
  3. CELECOXIB [Concomitant]
     Indication: CANCER PAIN
     Route: 048
  4. AMARYL [Concomitant]
     Indication: DIABETES MELLITUS
     Route: 048
  5. BLOPRESS [Concomitant]
     Indication: HYPERTENSION
     Route: 048
  6. ACTOS [Concomitant]
     Indication: DIABETES MELLITUS
     Route: 048
  7. OMEPRAL [Concomitant]
     Indication: REFLUX OESOPHAGITIS
     Route: 065
  8. FERRUM [Concomitant]
     Indication: ANAEMIA
     Route: 048
  9. NORVASC [Concomitant]
     Indication: HYPERTENSION
     Route: 048

REACTIONS (4)
  - URINARY RETENTION [None]
  - ANAEMIA [None]
  - HAEMATURIA [None]
  - HAEMATOCHEZIA [None]
